FAERS Safety Report 9276543 (Version 2)
Quarter: 2013Q2

REPORT INFORMATION
  Report Type: Spontaneous
  Country: US (occurrence: US)
  Receive Date: 20130507
  Receipt Date: 20130607
  Transmission Date: 20140414
  Serious: No
  Sender: FDA-Public Use
  Company Number: US-PFIZER INC-2013140526

PATIENT
  Age: 38 Year
  Sex: Female
  Weight: 48.98 kg

DRUGS (6)
  1. ZOLOFT [Suspect]
     Indication: OBSESSIVE-COMPULSIVE DISORDER
     Dosage: 150 MG, DAILY
     Dates: start: 200704
  2. ZOLOFT [Suspect]
     Dosage: 50 MG, DAILY
  3. ZOLOFT [Suspect]
     Dosage: 25 MG, DAILY
  4. ZOLOFT [Suspect]
     Dosage: 12.5 MG, 1X/DAY
     Dates: end: 20130427
  5. WELLBUTRIN [Concomitant]
     Indication: ANXIETY
     Dosage: 300 MG, DAILY
  6. WELLBUTRIN [Concomitant]
     Indication: DEPRESSION

REACTIONS (3)
  - Vertigo [Unknown]
  - Nausea [Unknown]
  - Feeling abnormal [Unknown]
